FAERS Safety Report 9337255 (Version 2)
Quarter: 2013Q2

REPORT INFORMATION
  Report Type: Spontaneous
  Country: PE (occurrence: PE)
  Receive Date: 20130607
  Receipt Date: 20130611
  Transmission Date: 20140414
  Serious: Yes (Hospitalization)
  Sender: FDA-Public Use
  Company Number: PE-PFIZER INC-2013147876

PATIENT
  Age: 64 Year
  Sex: Female

DRUGS (2)
  1. NORVASTOR [Suspect]
     Indication: HYPERTENSION
     Dosage: [AMLODIPINE BESILATE 2.5 MG]/ [ATORVASTATIN CALCIUM 10 MG], 1 DF ONCE A DAY
     Route: 048
     Dates: start: 2011
  2. SALBUTAMOL [Concomitant]
     Route: 055

REACTIONS (1)
  - Fall [Recovering/Resolving]
